FAERS Safety Report 23824929 (Version 1)
Quarter: 2024Q2

REPORT INFORMATION
  Report Type: Spontaneous
  Country: IT (occurrence: None)
  Receive Date: 20240507
  Receipt Date: 20240507
  Transmission Date: 20240715
  Serious: Yes (Life-Threatening, Hospitalization, Disabling)
  Sender: FDA-Public Use
  Company Number: None

PATIENT
  Age: 53 Year
  Sex: Male
  Weight: 85 kg

DRUGS (1)
  1. TOCILIZUMAB [Suspect]
     Active Substance: TOCILIZUMAB
     Indication: COVID-19 immunisation
     Route: 065
     Dates: start: 20200929, end: 20220218

REACTIONS (4)
  - Plasma cell myeloma [Recovering/Resolving]
  - Renal disorder [Recovering/Resolving]
  - Vomiting [Recovering/Resolving]
  - Facial paresis [Recovering/Resolving]

NARRATIVE: CASE EVENT DATE: 20220715
